FAERS Safety Report 8159223-0 (Version None)
Quarter: 2012Q1

REPORT INFORMATION
  Report Type: 
  Country: None (occurrence: None)
  Receive Date: 20120223
  Receipt Date: 20120213
  Transmission Date: 20120608
  Serious: Yes (Other)
  Sender: FDA-Public Use
  Company Number: JP-JNJFOC-20120111033

PATIENT
  Age: 41 Year
  Sex: Female
  Weight: 52 kg

DRUGS (2)
  1. INFLIXIMAB, RECOMBINANT [Suspect]
     Indication: CROHN'S DISEASE
     Dosage: INFLIXIMAB STARTED IN OCT (YEAR NOT PROVIDED) AT 0, 2, 6 AND THEN EVERY 8 WEEKS
     Route: 042
     Dates: start: 20081001
  2. ISONIAZID [Concomitant]
     Indication: LATENT TUBERCULOSIS
     Dosage: STARTED IN AUG (YEAR NOT PROVIDED) FOR 6 MONTHS
     Route: 065
     Dates: start: 20080801

REACTIONS (1)
  - LYMPH NODE TUBERCULOSIS [None]
